FAERS Safety Report 9400873 (Version 1)
Quarter: 2013Q3

REPORT INFORMATION
  Report Type: Spontaneous
  Country: IT (occurrence: None)
  Receive Date: 20130711
  Receipt Date: 20130711
  Transmission Date: 20140515
  Serious: Yes (Hospitalization)
  Sender: FDA-Public Use
  Company Number: ENTC2013-0243

PATIENT
  Sex: Female

DRUGS (5)
  1. STALEVO [Suspect]
     Indication: PARKINSON^S DISEASE
     Dosage: 150/37.5/200 MG 3 POSOLOGICAL UNIT  ORAL
     Route: 048
     Dates: start: 20130101
  2. RASILEZ [Concomitant]
  3. LUCEN [Concomitant]
  4. LYRICA [Concomitant]
  5. RATACAND [Concomitant]

REACTIONS (3)
  - Psychomotor hyperactivity [None]
  - Psychomotor hyperactivity [None]
  - Aggression [None]
